FAERS Safety Report 5209931-6 (Version None)
Quarter: 2006Q4

REPORT INFORMATION
  Report Type: 
  Country: None (occurrence: None)
  Receive Date: 20061128
  Receipt Date: 20060323
  Transmission Date: 20070319
  Serious: Yes (Other)
  Sender: FDA-Public Use
  Company Number: 2006041380

PATIENT
  Age: 69 Year
  Sex: Female
  Weight: 87.0906 kg

DRUGS (9)
  1. TIKOSYN [Suspect]
     Indication: ATRIAL FIBRILLATION
     Dosage: 1 MG (0.5 MG, 2 IN 1 D)
     Dates: start: 20060301
  2. DIOVAN [Concomitant]
  3. DILTIAZEM [Concomitant]
  4. NEXIUM [Concomitant]
  5. TRAMADOL HCL [Concomitant]
  6. LEVOTHYROXINE SODIUM [Concomitant]
  7. VICODIN [Concomitant]
  8. AZMACORT [Concomitant]
  9. ATROVENT [Concomitant]

REACTIONS (1)
  - BLOOD PRESSURE [None]
